FAERS Safety Report 17909302 (Version 1)
Quarter: 2020Q2

REPORT INFORMATION
  Report Type: Spontaneous
  Country: GB (occurrence: GB)
  Receive Date: 20200617
  Receipt Date: 20200617
  Transmission Date: 20200714
  Serious: Yes (Other)
  Sender: FDA-Public Use
  Company Number: GB-ASTRAZENECA-2020SE74415

PATIENT
  Age: 64 Year
  Sex: Male
  Weight: 128 kg

DRUGS (15)
  1. DAPAGLIFLOZIN. [Suspect]
     Active Substance: DAPAGLIFLOZIN
     Route: 048
     Dates: start: 20181011, end: 20200528
  2. INCRUSE ELLIPTA [Concomitant]
     Active Substance: UMECLIDINIUM BROMIDE
     Route: 055
     Dates: start: 20181011
  3. RAMIPRIL. [Concomitant]
     Active Substance: RAMIPRIL
     Dates: start: 20170308
  4. SALBUTAMOL [Concomitant]
     Active Substance: ALBUTEROL
     Dosage: 1, CURIES, 3-4 TIMES/DAY
     Route: 055
     Dates: start: 20181011
  5. LOPERAMIDE [Concomitant]
     Active Substance: LOPERAMIDE
     Dates: start: 20200421, end: 20200428
  6. WARFARIN SODIUM. [Concomitant]
     Active Substance: WARFARIN SODIUM
     Dosage: TAKE ONE AS DIRECTED
     Dates: start: 20170308
  7. ATORVASTATIN [Concomitant]
     Active Substance: ATORVASTATIN
     Dosage: BEFORE BEDTIME
     Dates: start: 20170308
  8. NOVOMIX [Concomitant]
     Active Substance: INSULIN ASPART
     Dosage: USE AS DIRECTED
     Dates: start: 20170503
  9. ZOPICLONE [Concomitant]
     Active Substance: ZOPICLONE
     Dosage: AT NIGHT
     Dates: start: 20200414, end: 20200421
  10. ISOSORBIDE MONONITRATE. [Concomitant]
     Active Substance: ISOSORBIDE MONONITRATE
     Dates: start: 20170308
  11. EPLERENONE. [Concomitant]
     Active Substance: EPLERENONE
     Dates: start: 20170308
  12. SODIUM CHLORIDE. [Concomitant]
     Active Substance: SODIUM CHLORIDE
     Dosage: USE AS DIRECTED
     Dates: start: 20200423, end: 20200507
  13. CARBOCISTEINE [Concomitant]
     Active Substance: CARBOCYSTEINE
     Dates: start: 20200423, end: 20200507
  14. COCODAMOL [Concomitant]
     Active Substance: ACETAMINOPHEN\CODEINE PHOSPHATE
     Dosage: TAKE 1 OR 2 4 TIMES/DAY
     Dates: start: 20200319, end: 20200327
  15. BISOPROLOL [Concomitant]
     Active Substance: BISOPROLOL
     Dates: start: 20170308

REACTIONS (1)
  - Necrotising fasciitis [Recovered/Resolved]
